FAERS Safety Report 7867502-7 (Version None)
Quarter: 2011Q4

REPORT INFORMATION
  Report Type: 
  Country: None (occurrence: None)
  Receive Date: 20111028
  Receipt Date: 20111014
  Transmission Date: 20120403
  Serious: Yes (Other)
  Sender: FDA-Public Use
  Company Number: PHEH2011US07039

PATIENT
  Sex: Male
  Weight: 107.94 kg

DRUGS (26)
  1. MAGNESIUM OXIDE [Concomitant]
     Dosage: 1 DF, DAILY
     Route: 048
     Dates: start: 20110902, end: 20111002
  2. VYTORIN [Concomitant]
     Dosage: 0.5 DF, AT BED TIME
     Route: 048
  3. IMODIUM MULTI-SYMPTOM RELIEF [Concomitant]
     Dosage: 2 DF, PRN
     Route: 048
     Dates: start: 20060914, end: 20110818
  4. TASIGNA [Concomitant]
     Indication: CHRONIC MYELOID LEUKAEMIA
     Dosage: 400 MG, DAILY
     Route: 048
     Dates: start: 20100419, end: 20100618
  5. AMARYL [Concomitant]
     Dosage: 4 MG, BID
     Route: 048
  6. MIRALAX [Concomitant]
     Dosage: 17OZ IN 8OZ OF H2O QD OR BID.
  7. OCUVITE PRESERVISION /USA/ [Concomitant]
     Dosage: 1 DF, BID
     Route: 048
  8. PANTOPRAZOLE [Concomitant]
     Dosage: UNK
     Dates: start: 20080818
  9. RITUXAN [Concomitant]
     Indication: NON-HODGKIN'S LYMPHOMA
  10. DIOVAN HCT [Concomitant]
     Dosage: UNK
     Dates: start: 20081030
  11. JANUMET [Concomitant]
     Dosage: 2 DF, DAILY
     Route: 048
  12. TARKA [Concomitant]
     Dosage: 1 DF, QD
     Route: 048
     Dates: start: 20090212
  13. FLOMAX [Concomitant]
     Dosage: SUST. RELEASE 24 HS 0.4 MG
     Dates: start: 20080317
  14. PROTONIX [Concomitant]
     Dosage: 1 DF, QD
     Route: 048
  15. CARVEDILOL [Concomitant]
     Dosage: UNK
     Dates: start: 20080822
  16. ACETAMINOPHEN AND HYDROCODONE BITARTRATE [Concomitant]
     Dosage: UNK
     Dates: start: 20110818
  17. NASONEX [Concomitant]
     Dosage: ONE SPRAY INTO NOSETRIL BID
     Dates: start: 20110117
  18. GLIMEPIRIDE [Concomitant]
     Dosage: 0.5 DF, BID
     Route: 048
     Dates: start: 20081110, end: 20100819
  19. CHOP [Concomitant]
     Indication: NON-HODGKIN'S LYMPHOMA
  20. POTASSIUM CHLORIDE [Concomitant]
     Dosage: 1 DF, TID
     Dates: start: 20110818
  21. CITRUCEL SUGAR FREE [Concomitant]
     Dosage: 1 SCOOP IN WATER QD
     Dates: end: 20110113
  22. METFORMIN [Concomitant]
     Dosage: 2 DF, BID
     Dates: start: 20081110, end: 20100819
  23. LOMOTIL [Concomitant]
     Dosage: 1 DF, PRN
     Route: 048
     Dates: start: 20110818
  24. FERROUS SULFATE TAB [Concomitant]
     Dosage: 1 DF, DAILY
  25. GLEEVEC [Suspect]
     Indication: CHRONIC MYELOID LEUKAEMIA (IN REMISSION)
     Dosage: 400 MG, DAILY
     Route: 050
     Dates: start: 20100914
  26. VERAMYST [Concomitant]
     Dosage: UNK
     Dates: start: 20081110, end: 20091103

REACTIONS (11)
  - COLORECTAL CANCER [None]
  - LIPOMA [None]
  - RASH [None]
  - BLOOD PRESSURE SYSTOLIC INCREASED [None]
  - HEPATIC CANCER METASTATIC [None]
  - HAEMOGLOBIN DECREASED [None]
  - DYSPLASTIC NAEVUS [None]
  - RENAL CELL CARCINOMA [None]
  - HAEMATOCRIT DECREASED [None]
  - SWELLING FACE [None]
  - BASAL CELL CARCINOMA [None]
